FAERS Safety Report 5051756-9 (Version None)
Quarter: 2006Q3

REPORT INFORMATION
  Report Type: 
  Country: None (occurrence: None)
  Receive Date: 20060711
  Receipt Date: 20060619
  Transmission Date: 20061208
  Serious: Yes (Death)
  Sender: FDA-Public Use
  Company Number: US200606004381

PATIENT
  Sex: Male

DRUGS (1)
  1. HUMULIN R [Suspect]

REACTIONS (1)
  - DEATH [None]
